FAERS Safety Report 5844854-0 (Version None)
Quarter: 2008Q3

REPORT INFORMATION
  Report Type: 
  Country: None (occurrence: None)
  Receive Date: 20080812
  Receipt Date: 20080728
  Transmission Date: 20090109
  Serious: Yes (Life-Threatening, Hospitalization, Other)
  Sender: FDA-Public Use
  Company Number: 031520

PATIENT
  Age: 52 Year
  Sex: Male
  Weight: 70 kg

DRUGS (13)
  1. DIAMOX [Suspect]
     Dosage: ORAL
  2. ARANESP [Suspect]
     Indication: RENAL FAILURE CHRONIC
     Dosage: 80 UG, 1 IN 2 WEEKS, SUBCUTANEOUS
     Route: 058
     Dates: start: 20061201, end: 20080301
  3. ATENOLOL [Concomitant]
  4. BRIMONIDINE TARTRATE [Concomitant]
  5. CALCIC ATORVASTATINE [Concomitant]
  6. CALCIUM CARBONATE (CALCIUM CARBONATE) [Concomitant]
  7. FUROSEMIDE (FUROSEMIDE) [Concomitant]
  8. IRBESARTAN [Concomitant]
  9. ASPIRIN [Concomitant]
  10. OMEPRAZOLE [Concomitant]
  11. ACETAMINOPHEN [Concomitant]
  12. PRAZOSIN HCL [Concomitant]
  13. XALATAN [Concomitant]

REACTIONS (5)
  - APLASIA PURE RED CELL [None]
  - CYTOMEGALOVIRUS ANTIBODY POSITIVE [None]
  - EPSTEIN-BARR VIRUS ANTIBODY POSITIVE [None]
  - PARVOVIRUS B19 SEROLOGY POSITIVE [None]
  - THROMBOCYTOPENIA [None]
